FAERS Safety Report 19637897 (Version 1)
Quarter: 2021Q3

REPORT INFORMATION
  Report Type: Spontaneous
  Country: US (occurrence: US)
  Receive Date: 20210729
  Receipt Date: 20210729
  Transmission Date: 20211014
  Serious: No
  Sender: FDA-Public Use
  Company Number: US-ROMARKLABS-2021-US-000036

PATIENT
  Age: 32 Year
  Sex: Male

DRUGS (1)
  1. ALINIA [Suspect]
     Active Substance: NITAZOXANIDE
     Indication: IRRITABLE BOWEL SYNDROME
     Dosage: TAKE 1 TAB BID FOR 7 DAYS
     Route: 048
     Dates: start: 2021

REACTIONS (3)
  - Abdominal pain [Unknown]
  - Headache [Unknown]
  - Fatigue [Unknown]

NARRATIVE: CASE EVENT DATE: 20210702
